FAERS Safety Report 17105363 (Version 1)
Quarter: 2019Q4

REPORT INFORMATION
  Report Type: Spontaneous
  Country: GB (occurrence: GB)
  Receive Date: 20191203
  Receipt Date: 20191203
  Transmission Date: 20200122
  Serious: Yes (Life-Threatening, Other)
  Sender: FDA-Public Use
  Company Number: GB-TEVA-2019-GB-1144323

PATIENT
  Age: 66 Year
  Sex: Female
  Weight: 86 kg

DRUGS (12)
  1. SALBUTAMOL [Concomitant]
     Active Substance: ALBUTEROL
     Dosage: 2 DOSAGE FORMS
     Route: 055
     Dates: start: 20190824, end: 20190921
  2. OMEPRAZOLE. [Concomitant]
     Active Substance: OMEPRAZOLE
     Dosage: 1 DOSAGE FORM
     Dates: start: 20160107
  3. FUROSEMIDE. [Concomitant]
     Active Substance: FUROSEMIDE
     Dosage: 1 DOSAGE FORM, EVERY MORNING.
     Dates: start: 20191002
  4. MST CONTINUS [Concomitant]
     Active Substance: MORPHINE SULFATE
     Dosage: 2 DOSAGE FORMS
     Dates: start: 20110125
  5. PAMIDRONATE DISODIUM. [Suspect]
     Active Substance: PAMIDRONATE DISODIUM
     Dosage: 30MG/10ML
     Route: 065
     Dates: start: 20191009
  6. AMOXICILLIN. [Concomitant]
     Active Substance: AMOXICILLIN
     Dosage: 3 DOSAGE FORMS
     Dates: start: 20190824, end: 20190831
  7. LEVOTHYROXINE. [Concomitant]
     Active Substance: LEVOTHYROXINE
     Dosage: 1 DOSAGE FORM, EACH MORNING
     Dates: start: 20160929
  8. MORPHINE SULFATE. [Concomitant]
     Active Substance: MORPHINE SULFATE
     Dosage: 10ML OR 15ML EVERY 4 HOURS
     Dates: start: 20110125
  9. DEXAMETHASONE. [Concomitant]
     Active Substance: DEXAMETHASONE
     Dosage: 1 DOSAGE FORM
     Dates: start: 20190812, end: 20190909
  10. ADCAL [Concomitant]
     Dosage: 2 DOSAGE FORMS
     Dates: start: 20150309
  11. ZAPAIN [Concomitant]
     Active Substance: ACETAMINOPHEN\CODEINE PHOSPHATE
     Dosage: ONE OR TWO TABLETS TO BE TAKEN UP TO A MAXIMUM ...
     Dates: start: 20120423
  12. PREGABALIN. [Concomitant]
     Active Substance: PREGABALIN
     Dates: start: 20190822

REACTIONS (1)
  - Anaphylactic reaction [Unknown]

NARRATIVE: CASE EVENT DATE: 20191009
